FAERS Safety Report 8301471-0 (Version None)
Quarter: 2012Q2

REPORT INFORMATION
  Report Type: 
  Country: None (occurrence: None)
  Receive Date: 20120420
  Receipt Date: 20120416
  Transmission Date: 20120825
  Serious: Yes (Other)
  Sender: FDA-Public Use
  Company Number: PHEH2012US002676

PATIENT
  Sex: Female

DRUGS (5)
  1. EFFEXOR [Concomitant]
     Dosage: UNK UKN, UNK
  2. SYNTHROID [Concomitant]
     Dosage: UNK UKN, UNK
  3. NAPROXEN [Concomitant]
     Dosage: UNK UKN, UNK
  4. BACLOFEN [Concomitant]
     Dosage: UNK UKN, UNK
  5. GILENYA [Suspect]
     Indication: MULTIPLE SCLEROSIS
     Dosage: 0.5 MG, QD
     Route: 048
     Dates: start: 20110708, end: 20120130

REACTIONS (10)
  - SPINAL OSTEOARTHRITIS [None]
  - CENTRAL NERVOUS SYSTEM LESION [None]
  - HYPOAESTHESIA [None]
  - CERVICAL SPINAL STENOSIS [None]
  - HERPES ZOSTER [None]
  - INTERVERTEBRAL DISC PROTRUSION [None]
  - POST HERPETIC NEURALGIA [None]
  - ATAXIA [None]
  - MULTIPLE SCLEROSIS RELAPSE [None]
  - MUSCULAR WEAKNESS [None]
